FAERS Safety Report 9725668 (Version 1)
Quarter: 2013Q4

REPORT INFORMATION
  Report Type: Spontaneous
  Country: US (occurrence: None)
  Receive Date: 20131202
  Receipt Date: 20131202
  Transmission Date: 20140711
  Serious: Yes (Other)
  Sender: FDA-Public Use
  Company Number: None

PATIENT
  Age: 60 Year
  Sex: Female
  Weight: 124.74 kg

DRUGS (1)
  1. ACETAMINOPHEN [Suspect]
     Indication: ARTHRALGIA
     Dosage: 2 PILLS
     Route: 048
     Dates: start: 20131019, end: 20131116

REACTIONS (5)
  - Diarrhoea [None]
  - Vomiting [None]
  - Muscle spasms [None]
  - Product substitution issue [None]
  - Drug effect decreased [None]
